FAERS Safety Report 6779151-2 (Version None)
Quarter: 2010Q2

REPORT INFORMATION
  Report Type: 
  Country: None (occurrence: None)
  Receive Date: 20100618
  Receipt Date: 20100609
  Transmission Date: 20101027
  Serious: Yes (Hospitalization)
  Sender: FDA-Public Use
  Company Number: FR-ASTRAZENECA-2010SE27272

PATIENT
  Age: 24739 Day
  Sex: Male

DRUGS (8)
  1. SYMBICORT [Suspect]
     Dosage: 400/12 UG/DOSE, TWO DF
     Route: 055
  2. PYOSTACINE [Suspect]
     Route: 048
     Dates: start: 20100303, end: 20100310
  3. LASIX [Suspect]
     Route: 048
  4. DIGITALINE NATIVELLE [Suspect]
     Route: 048
  5. TRIATEC [Suspect]
     Route: 048
  6. PREVISCAN [Suspect]
     Route: 048
  7. ISOPTIN [Suspect]
     Route: 048
  8. ALFUZOSIN HCL [Suspect]
     Route: 065

REACTIONS (1)
  - THROMBOCYTOPENIA [None]
